FAERS Safety Report 5609097-4 (Version None)
Quarter: 2008Q1

REPORT INFORMATION
  Report Type: 
  Country: None (occurrence: None)
  Receive Date: 20080131
  Receipt Date: 20080122
  Transmission Date: 20080703
  Serious: Yes (Other)
  Sender: FDA-Public Use
  Company Number: JP-ELI_LILLY_AND_COMPANY-JP200708003222

PATIENT
  Sex: Female
  Weight: 40 kg

DRUGS (9)
  1. EVISTA [Suspect]
     Indication: OSTEOPOROSIS POSTMENOPAUSAL
     Dosage: 60 MG, DAILY (1/D)
     Route: 048
     Dates: start: 20050305, end: 20070719
  2. CARFENIL [Concomitant]
     Indication: RHEUMATOID ARTHRITIS
     Dosage: 80 MG, 3/D
     Route: 048
     Dates: start: 19951225, end: 19960415
  3. CARFENIL [Concomitant]
     Dosage: 80 MG, 2/D
     Route: 048
     Dates: start: 19960420, end: 19961101
  4. CARFENIL [Concomitant]
     Dosage: 80 MG, 2/D
     Route: 048
     Dates: start: 19970408, end: 20010123
  5. CARFENIL [Concomitant]
     Dosage: 80 MG, 2/D
     Route: 048
     Dates: start: 20070123, end: 20070719
  6. TILCOTIL [Concomitant]
     Indication: ANALGESIA
     Dosage: 20 MG, DAILY (1/D)
     Route: 048
     Dates: start: 19950203, end: 19950410
  7. TILCOTIL [Concomitant]
     Dosage: 20 MG, DAILY (1/D)
     Route: 048
     Dates: start: 19950526, end: 19951124
  8. TILCOTIL [Concomitant]
     Dosage: 20 MG, DAILY (1/D)
     Route: 048
     Dates: start: 19960306, end: 19960415
  9. TILCOTIL [Concomitant]
     Dosage: 20 MG, DAILY (1/D)
     Route: 048
     Dates: start: 20060502, end: 20070719

REACTIONS (4)
  - ANAEMIA [None]
  - BLOOD CREATININE INCREASED [None]
  - HYPOALBUMINAEMIA [None]
  - HYPOPROTEINAEMIA [None]
